FAERS Safety Report 5829383-2 (Version None)
Quarter: 2008Q3

REPORT INFORMATION
  Report Type: 
  Country: None (occurrence: None)
  Receive Date: 20080731
  Receipt Date: 20080724
  Transmission Date: 20090109
  Serious: Yes (Hospitalization, Other)
  Sender: FDA-Public Use
  Company Number: ES-ABBOTT-08P-144-0446269-00

PATIENT
  Sex: Female
  Weight: 50 kg

DRUGS (10)
  1. HUMIRA [Suspect]
     Indication: RHEUMATOID ARTHRITIS
     Route: 058
     Dates: start: 20040921, end: 20080120
  2. HUMIRA [Suspect]
     Route: 058
     Dates: start: 20080220, end: 20080320
  3. COMMERCIAL HUMIRA [Concomitant]
     Indication: RHEUMATOID ARTHRITIS
     Dates: start: 20040318
  4. METHOTREXATE [Concomitant]
     Indication: RHEUMATOID ARTHRITIS
     Dates: start: 19901024, end: 20080414
  5. DEFLAZACORT [Concomitant]
     Indication: RHEUMATOID ARTHRITIS
     Dates: start: 20040101
  6. TRAMADOL HCL [Concomitant]
     Indication: RHEUMATOID ARTHRITIS
     Dates: start: 20040101
  7. TRAMADOL HCL [Concomitant]
     Indication: BACK PAIN
  8. AMLODIPINE MALEATE [Concomitant]
     Indication: HYPERTENSION
     Dates: start: 20040101
  9. ALPRAZOLAM [Concomitant]
     Indication: DEPRESSION
     Dates: start: 20040101
  10. CALCIUM CARBONATE [Concomitant]
     Indication: OSTEOPOROSIS
     Dates: start: 20040101

REACTIONS (7)
  - ANOREXIA [None]
  - ASTHENIA [None]
  - CELLULITIS [None]
  - HIP FRACTURE [None]
  - IMPAIRED HEALING [None]
  - PANCYTOPENIA [None]
  - PYREXIA [None]
